FAERS Safety Report 5548579-0 (Version None)
Quarter: 2007Q4

REPORT INFORMATION
  Report Type: 
  Country: None (occurrence: None)
  Receive Date: 20071211
  Receipt Date: 20070319
  Transmission Date: 20080405
  Serious: No
  Sender: FDA-Public Use
  Company Number: US-AMGEN-KDL214500

PATIENT
  Sex: Female
  Weight: 119.9 kg

DRUGS (2)
  1. ENBREL [Suspect]
     Indication: ANKYLOSING SPONDYLITIS
     Route: 058
     Dates: start: 20061204
  2. METHOTREXATE [Concomitant]
     Dates: start: 20060101

REACTIONS (5)
  - BODY TEMPERATURE INCREASED [None]
  - ERYTHEMA [None]
  - HEADACHE [None]
  - HYPERSENSITIVITY [None]
  - SINUSITIS [None]
